FAERS Safety Report 17221435 (Version 2)
Quarter: 2021Q1

REPORT INFORMATION
  Report Type: Spontaneous
  Country: GB (occurrence: GB)
  Receive Date: 20200101
  Receipt Date: 20210228
  Transmission Date: 20210419
  Serious: Yes (Other)
  Sender: FDA-Public Use
  Company Number: GB-AUROBINDO-AUR-APL-2019-108816

PATIENT
  Age: 76 Year
  Sex: Male

DRUGS (8)
  1. CYTOSINE ARABINOSIDE [Concomitant]
     Active Substance: CYTARABINE
     Indication: PRURITUS
     Dosage: UNK
     Route: 065
  2. AZACITIDINE. [Concomitant]
     Active Substance: AZACITIDINE
     Indication: PRURITUS
     Dosage: 75 MILLIGRAM/SQ. METER (EVERY 28 DAYS FOR 7 DAYS )
     Route: 058
  3. CETIRIZINE [Suspect]
     Active Substance: CETIRIZINE HYDROCHLORIDE
     Indication: PRURITUS
     Dosage: UNK
     Route: 065
  4. FEXOFENADINE [Suspect]
     Active Substance: FEXOFENADINE HYDROCHLORIDE
     Indication: PRURITUS
     Dosage: UNK
     Route: 065
  5. LORATADINE. [Suspect]
     Active Substance: LORATADINE
     Indication: PRURITUS
     Dosage: UNK
     Route: 065
  6. HYDROXYZINE [Suspect]
     Active Substance: HYDROXYZINE HYDROCHLORIDE
     Indication: PRURITUS
     Route: 065
  7. CHLORPHENAMINE [Suspect]
     Active Substance: CHLORPHENIRAMINE MALEATE
     Indication: PRURITUS
     Dosage: UNK
     Route: 065
  8. ETOPOSIDE. [Suspect]
     Active Substance: ETOPOSIDE
     Indication: CHRONIC MYELOMONOCYTIC LEUKAEMIA
     Dosage: UNK
     Route: 065

REACTIONS (1)
  - Drug ineffective [Unknown]
